FAERS Safety Report 10057852 (Version 2)
Quarter: 2014Q2

REPORT INFORMATION
  Report Type: Spontaneous
  Country: US (occurrence: None)
  Receive Date: 20140328
  Receipt Date: 20140418
  Transmission Date: 20141212
  Serious: No
  Sender: FDA-Public Use
  Company Number: US-145529

PATIENT
  Age: 12 Year
  Sex: Male
  Weight: 64 kg

DRUGS (2)
  1. BOTULISM ANTITOXIN [Suspect]
     Indication: BOTULISM
     Dosage: INTRAVENOUS ) NOT OTHERWISE SPECIFIED)
     Route: 042
     Dates: start: 20140312, end: 20140312
  2. FENTANYL [Concomitant]

REACTIONS (5)
  - Blood pressure diastolic decreased [None]
  - Heart rate decreased [None]
  - Rash erythematous [None]
  - Blood pressure decreased [None]
  - Body temperature decreased [None]
